FAERS Safety Report 6125290-9 (Version None)
Quarter: 2009Q1

REPORT INFORMATION
  Report Type: 
  Country: None (occurrence: None)
  Receive Date: 20090320
  Receipt Date: 20090310
  Transmission Date: 20090719
  Serious: Yes (Other)
  Sender: FDA-Public Use
  Company Number: GB-RANBAXY-2009RR-22578

PATIENT
  Sex: Female

DRUGS (2)
  1. FLUOXETINE [Suspect]
     Route: 065
  2. ALCOHOL [Suspect]

REACTIONS (2)
  - ALCOHOL INTERACTION [None]
  - SOMNOLENCE [None]
